FAERS Safety Report 10355562 (Version 1)
Quarter: 2014Q3

REPORT INFORMATION
  Report Type: Spontaneous
  Country: US (occurrence: None)
  Receive Date: 20140728
  Receipt Date: 20140728
  Transmission Date: 20150326
  Serious: Yes (Other)
  Sender: FDA-Public Use
  Company Number: BR14-276-AE

PATIENT
  Age: 12 Year
  Sex: Male
  Weight: 30.84 kg

DRUGS (2)
  1. GUANFACINE TABLETS, USP [Suspect]
     Active Substance: GUANFACINE
     Indication: ATTENTION DEFICIT/HYPERACTIVITY DISORDER
     Dosage: 2 TABLETS BID, ORAL
     Route: 048
  2. GUANFACINE TABLETS, USP [Suspect]
     Active Substance: GUANFACINE
     Dosage: THERAPY DATES: 04/14, 05/07/14, 2  TABLETS BID, ORAL
     Route: 048
     Dates: start: 201404

REACTIONS (3)
  - Accidental overdose [None]
  - Drug dispensing error [None]
  - Somnolence [None]
